FAERS Safety Report 5317456-2 (Version None)
Quarter: 2007Q2

REPORT INFORMATION
  Report Type: 
  Country: None (occurrence: None)
  Receive Date: 20070507
  Receipt Date: 20070425
  Transmission Date: 20071010
  Serious: Yes (Other)
  Sender: FDA-Public Use
  Company Number: PHBS2007CO07436

PATIENT
  Age: 64 Year
  Sex: Female

DRUGS (2)
  1. ZELMAC [Suspect]
     Indication: IRRITABLE BOWEL SYNDROME
     Dosage: 1 DF, Q12H
     Route: 048
     Dates: end: 20070410
  2. AMLODIPINE [Concomitant]
     Dosage: 10 MG/D
     Route: 065

REACTIONS (2)
  - PHLEBECTOMY [None]
  - THROMBOSIS [None]
